FAERS Safety Report 17199394 (Version 2)
Quarter: 2020Q2

REPORT INFORMATION
  Report Type: Report from Study
  Country: None (occurrence: TW)
  Receive Date: 20191226
  Receipt Date: 20200509
  Transmission Date: 20200713
  Serious: Yes (Hospitalization, Other)
  Sender: FDA-Public Use
  Company Number: TW-ABBVIE-19K-153-3208491-00

PATIENT
  Age: 55 Year
  Sex: Male

DRUGS (5)
  1. IMBRUVICA [Suspect]
     Active Substance: IBRUTINIB
     Route: 048
     Dates: start: 20191003
  2. IMBRUVICA [Suspect]
     Active Substance: IBRUTINIB
     Route: 048
     Dates: start: 20190902, end: 20191002
  3. IMBRUVICA [Suspect]
     Active Substance: IBRUTINIB
     Indication: CHRONIC LYMPHOCYTIC LEUKAEMIA
     Dosage: 420MG/ CAPSULE /QD /PO
     Route: 048
     Dates: start: 20181229, end: 201904
  4. IMBRUVICA [Suspect]
     Active Substance: IBRUTINIB
     Route: 048
     Dates: start: 20190806, end: 20190901
  5. IMBRUVICA [Suspect]
     Active Substance: IBRUTINIB
     Indication: LYMPHOCYTIC LYMPHOMA
     Dosage: 420MG/ CAPSULE /QD /PO
     Route: 048
     Dates: start: 20190713, end: 20190801

REACTIONS (15)
  - Hepatitis B [Recovered/Resolved]
  - Cellulitis [Recovered/Resolved]
  - Fatigue [Recovered/Resolved]
  - Hepatic failure [Unknown]
  - Pancreatic carcinoma [Not Recovered/Not Resolved]
  - Hepatic enzyme increased [Recovered/Resolved]
  - Oesophagitis [Not Recovered/Not Resolved]
  - Malaise [Recovered/Resolved]
  - Mouth ulceration [Unknown]
  - Lymphadenopathy [Not Recovered/Not Resolved]
  - Insomnia [Recovered/Resolved]
  - Lymphocytosis [Unknown]
  - Hospitalisation [Recovered/Resolved]
  - Muscle spasms [Recovered/Resolved]
  - Bone pain [Recovered/Resolved]

NARRATIVE: CASE EVENT DATE: 201904
